FAERS Safety Report 8607305-9 (Version None)
Quarter: 2012Q3

REPORT INFORMATION
  Report Type: 
  Country: None (occurrence: None)
  Receive Date: 20120807
  Receipt Date: 20120724
  Transmission Date: 20120928
  Serious: Yes (Other)
  Sender: FDA-Public Use
  Company Number: DKLU1083636

PATIENT
  Sex: Female

DRUGS (14)
  1. ZONISAMIDE [Concomitant]
  2. CLONAZEPAM [Suspect]
     Indication: INFANTILE SPASMS
  3. VALPROIC ACID [Suspect]
     Indication: INFANTILE SPASMS
  4. GABAPENTIN [Suspect]
     Indication: INFANTILE SPASMS
  5. LAMOTRIGINE [Suspect]
     Indication: INFANTILE SPASMS
  6. LEVETIRACETAM [Suspect]
     Indication: INFANTILE SPASMS
  7. CORTICOTROPIN (CORTICOTROPIN) [Concomitant]
  8. ONFI [Suspect]
     Indication: INFANTILE SPASMS
  9. NITRAZEPAM [Concomitant]
  10. PYRIDOXINE HYDROCHLORIDE (PYRIDOXINE HYDROCHLORIDE) [Concomitant]
  11. PHENYTOIN [Suspect]
     Indication: INFANTILE SPASMS
  12. CARBAMAZEPINE [Suspect]
     Indication: INFANTILE SPASMS
  13. PHENOBARBITAL TAB [Suspect]
     Indication: INFANTILE SPASMS
  14. POTASSIUM BROMIDE (POTASSIUM BROMIDE) [Concomitant]

REACTIONS (6)
  - HEAD INJURY [None]
  - DEVELOPMENTAL DELAY [None]
  - CONVULSION [None]
  - DRUG INEFFECTIVE [None]
  - FALL [None]
  - DROP ATTACKS [None]
